FAERS Safety Report 24548127 (Version 3)
Quarter: 2024Q4

REPORT INFORMATION
  Report Type: Spontaneous
  Country: JP (occurrence: JP)
  Receive Date: 20241025
  Receipt Date: 20241227
  Transmission Date: 20250115
  Serious: Yes (Hospitalization, Other)
  Sender: GLAXOSMITHKLINE
  Company Number: None

PATIENT

DRUGS (8)
  1. MOMELOTINIB [Suspect]
     Active Substance: MOMELOTINIB
     Indication: Myelofibrosis
     Dosage: 200 MG, 1D
     Route: 048
     Dates: start: 20241008, end: 20241016
  2. HYDREA [Concomitant]
     Active Substance: HYDROXYUREA
     Indication: Myelofibrosis
     Dosage: 3 DF, 1D AFTER BREAKFAST
     Dates: start: 20221020
  3. RUXOLITINIB [Concomitant]
     Active Substance: RUXOLITINIB
     Indication: Myelofibrosis
     Dosage: 2 DF, BID, AFTER BREAKFAST AND SUPPER
     Dates: start: 20220727, end: 20241007
  4. LANSOPRAZOLE [Concomitant]
     Active Substance: LANSOPRAZOLE
     Dosage: 1 DF, 1D, AFTER BREAKFAST
     Dates: start: 20240803
  5. FEBUXOSTAT [Concomitant]
     Active Substance: FEBUXOSTAT
     Dosage: 1 DF, 1D, AFTER BREAKFAST
  6. AMLODIPINE [Concomitant]
     Active Substance: AMLODIPINE BESYLATE
     Dosage: 1 DF, 1D, AT BEDTIME
  7. BIO-THREE [Concomitant]
     Active Substance: HERBALS
     Dosage: 1 DF, TID, AFTER EACH MEAL
  8. CELECOXIB [Concomitant]
     Active Substance: CELECOXIB
     Dosage: 1 DF, BID, AFTER BREAKFAST AND SUPPER

REACTIONS (3)
  - Renal impairment [Recovered/Resolved]
  - Pneumonia [Recovered/Resolved]
  - Blood creatinine increased [Recovered/Resolved]

NARRATIVE: CASE EVENT DATE: 20241016
